APPROVED DRUG PRODUCT: ERY-TAB
Active Ingredient: ERYTHROMYCIN
Strength: 250MG
Dosage Form/Route: TABLET, DELAYED RELEASE;ORAL
Application: A062298 | Product #001 | TE Code: AB
Applicant: PHARMOBEDIENT CONSULTING LLC
Approved: Approved Prior to Jan 1, 1982 | RLD: No | RS: No | Type: RX